FAERS Safety Report 8436004-1 (Version None)
Quarter: 2012Q2

REPORT INFORMATION
  Report Type: 
  Country: None (occurrence: None)
  Receive Date: 20120614
  Receipt Date: 20120608
  Transmission Date: 20120825
  Serious: Yes (Other)
  Sender: FDA-Public Use
  Company Number: ES-ROCHE-1068802

PATIENT
  Sex: Female

DRUGS (3)
  1. TAPENTADOL [Concomitant]
     Indication: PAIN
     Route: 048
     Dates: start: 20120504, end: 20120509
  2. GEMCITABINE [Suspect]
     Indication: PANCREATIC CARCINOMA
     Dosage: DAY 1, 8, 15
     Route: 042
     Dates: start: 20120503, end: 20120509
  3. XELODA [Suspect]
     Indication: PANCREATIC CARCINOMA
     Route: 048
     Dates: start: 20120503, end: 20120509

REACTIONS (1)
  - STRESS CARDIOMYOPATHY [None]
